FAERS Safety Report 26023723 (Version 3)
Quarter: 2025Q4

REPORT INFORMATION
  Report Type: Spontaneous
  Country: UY (occurrence: UY)
  Receive Date: 20251111
  Receipt Date: 20251226
  Transmission Date: 20260117
  Serious: Yes (Hospitalization)
  Sender: AMGEN
  Company Number: UY-IMMEDICA-IM2025UY0064

PATIENT
  Age: 35 Year
  Sex: Female
  Weight: 66 kg

DRUGS (7)
  1. SODIUM PHENYLBUTYRATE [Suspect]
     Active Substance: SODIUM PHENYLBUTYRATE
     Indication: Arginase deficiency
     Dosage: 24 TABLETS PER DAY
     Route: 065
     Dates: start: 2019, end: 20251029
  2. SODIUM PHENYLBUTYRATE [Suspect]
     Active Substance: SODIUM PHENYLBUTYRATE
     Dosage: UNK
     Route: 065
     Dates: start: 20251104
  3. PEGZILARGINASE [Suspect]
     Active Substance: PEGZILARGINASE
     Indication: Arginase deficiency
     Dosage: 7 MILLIGRAM, ONCE WEEKLY
     Route: 040
  4. PEGZILARGINASE [Suspect]
     Active Substance: PEGZILARGINASE
     Dosage: 5 MILLIGRAM, ONCE WEEKLY
     Route: 040
     Dates: start: 20251015
  5. LEVETIRACETAM [Concomitant]
     Active Substance: LEVETIRACETAM
     Dosage: 500 MILLIGRAM, TWICE DAILY
     Route: 065
  6. BACLOFEN [Concomitant]
     Active Substance: BACLOFEN
     Dosage: 10 MILLIGRAM, ONCE DAILY
     Route: 065
  7. MELATONIN [Concomitant]
     Active Substance: MELATONIN
     Dosage: 5 MILLIGRAM, ONCE DAILY
     Route: 065

REACTIONS (7)
  - Hyperammonaemia [Recovered/Resolved]
  - Vomiting [Unknown]
  - Nausea [Unknown]
  - Somnolence [Unknown]
  - Abdominal discomfort [Unknown]
  - Hepatic enzyme increased [Unknown]
  - Malaise [Unknown]
